FAERS Safety Report 5576304-6 (Version None)
Quarter: 2007Q4

REPORT INFORMATION
  Report Type: 
  Country: None (occurrence: None)
  Receive Date: 20071228
  Receipt Date: 20071214
  Transmission Date: 20080405
  Serious: Yes (Hospitalization, Other)
  Sender: FDA-Public Use
  Company Number: US-BAYER-US-2007-032138

PATIENT
  Age: 48 Year
  Sex: Female
  Weight: 65 kg

DRUGS (10)
  1. BETASERON [Suspect]
     Indication: RELAPSING-REMITTING MULTIPLE SCLEROSIS
     Route: 058
     Dates: start: 20020103
  2. BETASERON [Suspect]
     Route: 058
     Dates: start: 20070101
  3. BETASERON [Suspect]
     Dosage: TOTAL DAILY DOSE: 8 MIU
     Route: 058
     Dates: start: 20040101, end: 20070902
  4. PROZAC [Concomitant]
     Dosage: TOTAL DAILY DOSE: 20 MG
     Route: 048
  5. PROZAC [Concomitant]
  6. PROVIGIL [Concomitant]
     Dosage: TOTAL DAILY DOSE: 200 MG
     Route: 048
  7. PROVIGIL [Concomitant]
  8. ABILIFY [Concomitant]
  9. SOLU-MEDROL [Concomitant]
     Dosage: TOTAL DAILY DOSE: 1000 MG
  10. LUNESTA [Concomitant]
     Dosage: TOTAL DAILY DOSE: 3 MG
     Route: 048

REACTIONS (4)
  - GAIT DISTURBANCE [None]
  - MULTIPLE SCLEROSIS [None]
  - TRANSIENT ISCHAEMIC ATTACK [None]
  - UNEVALUABLE EVENT [None]
